FAERS Safety Report 6037454-3 (Version None)
Quarter: 2009Q1

REPORT INFORMATION
  Report Type: 
  Country: None (occurrence: None)
  Receive Date: 20090114
  Receipt Date: 20081201
  Transmission Date: 20090719
  Serious: Yes (Life-Threatening, Hospitalization)
  Sender: FDA-Public Use
  Company Number: AT-PFIZER INC-2008066164

PATIENT

DRUGS (5)
  1. SUNITINIB MALATE [Suspect]
     Indication: PROSTATE CANCER
     Dosage: D2-14 EVERY 3 WEEKS.
     Route: 048
     Dates: start: 20080618, end: 20080803
  2. DOCETAXEL [Suspect]
     Indication: PROSTATE CANCER
     Dosage: D1 EVERY 3 WEEKS
     Dates: start: 20080617
  3. PANTOPRAZOLE SODIUM [Concomitant]
     Route: 048
  4. METOCLOPRAMIDE HYDROCHLORIDE [Concomitant]
     Route: 048
  5. LOPERAMIDE HCL [Concomitant]
     Route: 048

REACTIONS (1)
  - MYOCARDIAL INFARCTION [None]
